FAERS Safety Report 5628609-8 (Version None)
Quarter: 2008Q1

REPORT INFORMATION
  Report Type: 
  Country: None (occurrence: None)
  Receive Date: 20080215
  Receipt Date: 20080208
  Transmission Date: 20080703
  Serious: Yes (Hospitalization)
  Sender: FDA-Public Use
  Company Number: AU-MERCK-0802AUS00066

PATIENT
  Age: 62 Year
  Sex: Female

DRUGS (12)
  1. FOSAMAX [Suspect]
     Route: 048
     Dates: start: 20071101, end: 20071201
  2. FOSAMAX [Suspect]
     Route: 048
     Dates: end: 20070701
  3. IRBESARTAN [Concomitant]
     Indication: BLOOD PRESSURE ABNORMAL
     Route: 065
     Dates: end: 20070701
  4. IRBESARTAN [Concomitant]
     Route: 065
     Dates: start: 20071101
  5. ATORVASTATIN CALCIUM [Concomitant]
     Indication: BLOOD CHOLESTEROL ABNORMAL
     Route: 065
     Dates: end: 20070701
  6. ATORVASTATIN CALCIUM [Concomitant]
     Route: 065
     Dates: start: 20071101
  7. ASPIRIN [Concomitant]
     Indication: CARDIAC DISORDER
     Route: 065
     Dates: end: 20070701
  8. ASPIRIN [Concomitant]
     Route: 065
     Dates: start: 20071101
  9. GLUCOSAMINE [Concomitant]
     Indication: ARTHRITIS
     Route: 065
     Dates: end: 20070701
  10. GLUCOSAMINE [Concomitant]
     Route: 065
     Dates: start: 20071101
  11. OMEGA-3 MARINE TRIGLYCERIDES [Concomitant]
     Route: 065
     Dates: start: 20071101
  12. OMEGA-3 MARINE TRIGLYCERIDES [Concomitant]
     Route: 065
     Dates: end: 20070701

REACTIONS (6)
  - ABDOMINAL PAIN UPPER [None]
  - COMA [None]
  - GASTROOESOPHAGEAL REFLUX DISEASE [None]
  - MALAISE [None]
  - MENINGITIS [None]
  - NAUSEA [None]
